FAERS Safety Report 20885174 (Version 1)
Quarter: 2022Q2

REPORT INFORMATION
  Report Type: Spontaneous
  Country: JP (occurrence: JP)
  Receive Date: 20220527
  Receipt Date: 20220527
  Transmission Date: 20220721
  Serious: Yes (Other)
  Sender: FDA-Public Use
  Company Number: JP-ONO- 2022JP011211

PATIENT

DRUGS (2)
  1. ONGENTYS [Suspect]
     Active Substance: OPICAPONE
     Indication: Parkinson^s disease
     Dosage: 25 MILLIGRAM, AFTER BREAKFAST
     Route: 048
     Dates: start: 20220312, end: 202203
  2. ONGENTYS [Suspect]
     Active Substance: OPICAPONE
     Dosage: 25 MILLIGRAM, BEFORE BEDTIME
     Route: 048
     Dates: start: 20220326

REACTIONS (3)
  - Dystonia [Recovered/Resolved]
  - Dyskinesia [Recovered/Resolved]
  - Wrong technique in product usage process [Recovered/Resolved]

NARRATIVE: CASE EVENT DATE: 20220312
